FAERS Safety Report 10711674 (Version 2)
Quarter: 2015Q1

REPORT INFORMATION
  Report Type: Report from Study
  Country: CO (occurrence: CO)
  Receive Date: 20150114
  Receipt Date: 20150321
  Transmission Date: 20150721
  Serious: Yes (Hospitalization, Disabling)
  Sender: FDA-Public Use
  Company Number: CO-EMD SERONO-8002886

PATIENT
  Age: 40 Year
  Sex: Female
  Weight: 66 kg

DRUGS (2)
  1. REBIF [Suspect]
     Active Substance: INTERFERON BETA-1A
     Dosage: SUSPENDED DURING HOSPITALIZATION AND RESUMED ON 5 JAN 2015.
  2. REBIF [Suspect]
     Active Substance: INTERFERON BETA-1A
     Indication: MULTIPLE SCLEROSIS
     Route: 058
     Dates: start: 20140626

REACTIONS (15)
  - Abasia [Recovering/Resolving]
  - Loss of consciousness [Unknown]
  - Fatigue [Unknown]
  - Sensory disturbance [Unknown]
  - Gait disturbance [Unknown]
  - Muscle rigidity [Unknown]
  - Treatment noncompliance [Unknown]
  - Muscular weakness [Unknown]
  - Vision blurred [Unknown]
  - Urinary tract infection [Unknown]
  - Weight decreased [Unknown]
  - Depression [Unknown]
  - Unevaluable event [Unknown]
  - Pain in extremity [Not Recovered/Not Resolved]
  - Headache [Unknown]

NARRATIVE: CASE EVENT DATE: 20140626
